APPROVED DRUG PRODUCT: LUNESTA
Active Ingredient: ESZOPICLONE
Strength: 3MG
Dosage Form/Route: TABLET;ORAL
Application: N021476 | Product #003 | TE Code: AB
Applicant: WAYLIS THERAPEUTICS LLC
Approved: Dec 15, 2004 | RLD: Yes | RS: Yes | Type: RX